FAERS Safety Report 8045005-7 (Version None)
Quarter: 2012Q1

REPORT INFORMATION
  Report Type: 
  Country: None (occurrence: None)
  Receive Date: 20120113
  Receipt Date: 20120106
  Transmission Date: 20120608
  Serious: Yes (Other)
  Sender: FDA-Public Use
  Company Number: PHEH2012US000802

PATIENT
  Sex: Female

DRUGS (1)
  1. GLEEVEC [Suspect]
     Dosage: AT A DOSE OF 100 (UNIT NOT SPECIFIED) FOUR TIMES A DAY
     Route: 048
     Dates: start: 20110109

REACTIONS (1)
  - NEOPLASM [None]
